FAERS Safety Report 11620335 (Version 4)
Quarter: 2015Q4

REPORT INFORMATION
  Report Type: Spontaneous
  Country: UY (occurrence: UY)
  Receive Date: 20151012
  Receipt Date: 20151124
  Transmission Date: 20160304
  Serious: Yes (Congenital Anomaly)
  Sender: FDA-Public Use
  Company Number: UY-SA-2015SA151008

PATIENT
  Age: 0 Year
  Sex: Female
  Weight: 2.9 kg

DRUGS (1)
  1. LOVENOX [Suspect]
     Active Substance: ENOXAPARIN SODIUM
     Route: 064

REACTIONS (4)
  - Hypopituitarism [Unknown]
  - Foetal exposure during pregnancy [Unknown]
  - Apnoea [Unknown]
  - Hypoglycaemia [Unknown]
